FAERS Safety Report 14294405 (Version 2)
Quarter: 2017Q4

REPORT INFORMATION
  Report Type: Spontaneous
  Country: JP (occurrence: JP)
  Receive Date: 20171218
  Receipt Date: 20171219
  Transmission Date: 20180321
  Serious: No
  Sender: FDA-Public Use
  Company Number: JP-ABBVIE-17K-087-2160147-00

PATIENT
  Age: 78 Year
  Sex: Female

DRUGS (1)
  1. DUODOPA [Suspect]
     Active Substance: CARBIDOPA\LEVODOPA
     Indication: PARKINSON^S DISEASE
     Dosage: 09 DEC 17 : ED ADMINISTERED AT 4 PM AND 6 PM
     Route: 050
     Dates: start: 20170210

REACTIONS (7)
  - Dyspnoea [Unknown]
  - Anxiety [Unknown]
  - Parkinson^s disease [Unknown]
  - Drug effect incomplete [Unknown]
  - Device issue [Unknown]
  - On and off phenomenon [Unknown]
  - Hypokinesia [Unknown]

NARRATIVE: CASE EVENT DATE: 2017
